FAERS Safety Report 4447017-9 (Version None)
Quarter: 2004Q3

REPORT INFORMATION
  Report Type: 
  Country: None (occurrence: None)
  Receive Date: 20040812
  Receipt Date: 20040512
  Transmission Date: 20050211
  Serious: No
  Sender: FDA-Public Use
  Company Number: US_0405102963

PATIENT
  Sex: Male

DRUGS (3)
  1. CIALIS [Suspect]
     Dates: start: 20040301
  2. COZAAR [Concomitant]
  3. NYQUIL NIGHTTIME COLD/FLU MEDICINE [Concomitant]

REACTIONS (5)
  - DIZZINESS [None]
  - DRUG INTERACTION [None]
  - ERECTION INCREASED [None]
  - FEELING ABNORMAL [None]
  - TREMOR [None]
